FAERS Safety Report 7728030-2 (Version None)
Quarter: 2011Q3

REPORT INFORMATION
  Report Type: 
  Country: None (occurrence: None)
  Receive Date: 20110905
  Receipt Date: 20110826
  Transmission Date: 20111222
  Serious: No
  Sender: FDA-Public Use
  Company Number: US-BIOGENIDEC-2011BI033172

PATIENT
  Sex: Male

DRUGS (5)
  1. WELLBUTRIN [Concomitant]
     Indication: DEPRESSION
  2. TYSABRI [Suspect]
     Indication: MULTIPLE SCLEROSIS
     Route: 042
     Dates: start: 20110809
  3. WELLBUTRIN [Concomitant]
     Indication: SUICIDAL IDEATION
  4. CELEXA [Concomitant]
     Indication: SUICIDAL IDEATION
  5. CELEXA [Concomitant]
     Indication: DEPRESSION

REACTIONS (7)
  - FATIGUE [None]
  - MOTOR DYSFUNCTION [None]
  - ARTHRALGIA [None]
  - DEPRESSION [None]
  - BONE PAIN [None]
  - SUICIDAL IDEATION [None]
  - DIZZINESS [None]
